FAERS Safety Report 9314710 (Version 1)
Quarter: 2013Q2

REPORT INFORMATION
  Report Type: Spontaneous
  Country: US (occurrence: US)
  Receive Date: 20130529
  Receipt Date: 20130529
  Transmission Date: 20140414
  Serious: Yes (Other)
  Sender: FDA-Public Use
  Company Number: US-ROCHE-1228801

PATIENT
  Age: 48 Year
  Sex: Male

DRUGS (3)
  1. XELODA [Suspect]
     Indication: COLON CANCER
     Dosage: 7 DAYS ON - 7 DAYS OFF
     Route: 048
     Dates: start: 20120613, end: 201302
  2. OXYCODONE [Concomitant]
     Indication: PAIN
     Route: 048
  3. MORPHINE [Concomitant]
     Indication: PAIN
     Route: 048

REACTIONS (2)
  - Disease progression [Not Recovered/Not Resolved]
  - Treatment failure [Unknown]
